FAERS Safety Report 14968082 (Version 1)
Quarter: 2018Q2

REPORT INFORMATION
  Report Type: Spontaneous
  Country: IT (occurrence: IT)
  Receive Date: 20180604
  Receipt Date: 20180604
  Transmission Date: 20180711
  Serious: Yes (Other)
  Sender: FDA-Public Use
  Company Number: IT-ROCHE-2133410

PATIENT
  Age: 56 Year
  Sex: Female

DRUGS (2)
  1. CELLCEPT [Suspect]
     Active Substance: MYCOPHENOLATE MOFETIL\MYCOPHENOLATE MOFETIL HYDROCHLORIDE
     Indication: EOSINOPHILIC GRANULOMATOSIS WITH POLYANGIITIS
     Route: 065
  2. MYCOPHENOLATE MOFETIL (NON-ROCHE) [Suspect]
     Active Substance: MYCOPHENOLATE MOFETIL
     Indication: EOSINOPHILIC GRANULOMATOSIS WITH POLYANGIITIS
     Route: 048
     Dates: start: 20170101, end: 20170311

REACTIONS (1)
  - Eosinophilic granulomatosis with polyangiitis [Unknown]

NARRATIVE: CASE EVENT DATE: 20170311
